FAERS Safety Report 6165049-X (Version None)
Quarter: 2009Q2

REPORT INFORMATION
  Report Type: 
  Country: None (occurrence: None)
  Receive Date: 20090423
  Receipt Date: 20090409
  Transmission Date: 20091009
  Serious: Yes (Other)
  Sender: FDA-Public Use
  Company Number: US-BAYER-200912388GPV

PATIENT
  Age: 37 Year
  Sex: Female

DRUGS (6)
  1. ALEMTUZUMAB [Suspect]
     Indication: MULTIPLE SCLEROSIS
     Dosage: BLINDED DOSE
     Route: 042
     Dates: start: 20090119, end: 20090121
  2. ALEMTUZUMAB [Suspect]
     Route: 042
     Dates: start: 20090128, end: 20090129
  3. METHYLPREDNISOLONE 4MG TAB [Concomitant]
     Dates: start: 20090119, end: 20090121
  4. DEXCHLORPHENIRAMINE [Concomitant]
     Dates: start: 20090119
  5. PARACETAMOL WITH CODEINE PHOSPHATE [Concomitant]
     Dates: start: 20090119
  6. RANITIDINE [Concomitant]
     Dates: start: 20090119

REACTIONS (2)
  - ABDOMINAL PAIN [None]
  - GALLBLADDER DISORDER [None]
